FAERS Safety Report 7611704-1 (Version None)
Quarter: 2011Q2

REPORT INFORMATION
  Report Type: 
  Country: None (occurrence: None)
  Receive Date: 20110630
  Receipt Date: 20110624
  Transmission Date: 20111010
  Serious: Yes (Hospitalization, Other)
  Sender: FDA-Public Use
  Company Number: 2011028317

PATIENT
  Age: 46 Year
  Sex: Female
  Weight: 104.3273 kg

DRUGS (16)
  1. HIZENTRA [Suspect]
  2. LASIX [Concomitant]
  3. NEURONTIN [Concomitant]
  4. LORCET-HD [Concomitant]
  5. AMBIEN [Concomitant]
  6. SPIRONOLACTONE [Concomitant]
  7. LOPRESSOR [Concomitant]
  8. PROMETHAZINE [Concomitant]
  9. POTASSIUM (POTASSIUM) [Concomitant]
  10. FLEXERIL [Concomitant]
  11. HIZENTRA [Suspect]
     Indication: IMMUNODEFICIENCY COMMON VARIABLE
     Dosage: SEE IMAGE
     Route: 058
     Dates: start: 20110414
  12. HIZENTRA [Suspect]
     Indication: IMMUNODEFICIENCY COMMON VARIABLE
     Dosage: SEE IMAGE
     Route: 058
     Dates: start: 20110412
  13. HYDROXYZINE [Concomitant]
  14. VERAPAMIL [Concomitant]
  15. CYMBALTA [Concomitant]
  16. ACETAMINOPHEN [Concomitant]

REACTIONS (3)
  - CELLULITIS [None]
  - FATIGUE [None]
  - URINARY TRACT INFECTION [None]
